FAERS Safety Report 18553425 (Version 7)
Quarter: 2025Q1

REPORT INFORMATION
  Report Type: Spontaneous
  Country: US (occurrence: US)
  Receive Date: 20201127
  Receipt Date: 20250124
  Transmission Date: 20250409
  Serious: Yes (Death, Hospitalization, Other)
  Sender: PFIZER
  Company Number: US-PFIZER INC-2020467130

PATIENT
  Age: 86 Year
  Sex: Male
  Weight: 68.04 kg

DRUGS (1)
  1. VYNDAMAX [Suspect]
     Active Substance: TAFAMIDIS
     Indication: Amyloidosis
     Dosage: 61 MG, DAILY (TOOK 61MG; ONE CAPSULE EVERY DAY BY MOUTH )
     Route: 048
     Dates: end: 202501

REACTIONS (6)
  - Influenza [Fatal]
  - Cardiac failure [Fatal]
  - Respiratory distress [Fatal]
  - Neoplasm malignant [Unknown]
  - Pharyngeal disorder [Unknown]
  - Feeding tube user [Unknown]
